FAERS Safety Report 6567319-X (Version None)
Quarter: 2010Q1

REPORT INFORMATION
  Report Type: 
  Country: None (occurrence: None)
  Receive Date: 20100202
  Receipt Date: 20100121
  Transmission Date: 20100710
  Serious: Yes (Hospitalization)
  Sender: FDA-Public Use
  Company Number: PHHY2009IE60161

PATIENT
  Sex: Male

DRUGS (3)
  1. CLOZARIL [Suspect]
     Indication: SCHIZOPHRENIA
     Dosage: 400 MG PER DAY
     Route: 048
     Dates: start: 20090406
  2. FYBOGEL [Concomitant]
     Indication: CONSTIPATION
     Dosage: ONE SACHET/DAY
     Route: 048
  3. LACTULOSE [Concomitant]
     Indication: CONSTIPATION
     Dosage: 20MLS/DAY
     Route: 048

REACTIONS (4)
  - ABDOMINAL PAIN [None]
  - APPENDICECTOMY [None]
  - APPENDICITIS PERFORATED [None]
  - PERICARDITIS [None]
